FAERS Safety Report 5591570-9 (Version None)
Quarter: 2008Q1

REPORT INFORMATION
  Report Type: 
  Country: None (occurrence: None)
  Receive Date: 20080115
  Receipt Date: 20080115
  Transmission Date: 20080703
  Serious: Yes (Other)
  Sender: FDA-Public Use
  Company Number: A0703305A

PATIENT

DRUGS (2)
  1. ALLI [Suspect]
     Indication: WEIGHT LOSS DIET
     Route: 048
  2. VITAMINS [Suspect]
     Indication: VITAMIN SUPPLEMENTATION
     Route: 048

REACTIONS (5)
  - ANAEMIA [None]
  - DIZZINESS [None]
  - DRUG INTERACTION [None]
  - FREQUENT BOWEL MOVEMENTS [None]
  - WEIGHT INCREASED [None]
